FAERS Safety Report 20334937 (Version 1)
Quarter: 2022Q1

REPORT INFORMATION
  Report Type: Spontaneous
  Country: US (occurrence: US)
  Receive Date: 20220114
  Receipt Date: 20220114
  Transmission Date: 20220423
  Serious: No
  Sender: FDA-Public Use
  Company Number: US-BIOVITRUM-2022US00415

PATIENT
  Sex: Female
  Weight: 7 kg

DRUGS (6)
  1. SYNAGIS [Suspect]
     Active Substance: PALIVIZUMAB
     Indication: Premature baby
     Route: 030
     Dates: start: 202111
  2. Aeroped susp 250 mg/5 ml. [Concomitant]
  3. PEN DK 250mg/5ml [Concomitant]
  4. SYNAGIS [Suspect]
     Active Substance: PALIVIZUMAB
     Indication: Bronchopulmonary dysplasia
  5. PROBIOTIC PLUS COLOSTRUM [Concomitant]
  6. FAMOTIDINE 40M/5ML SUSP RECON [Concomitant]

REACTIONS (2)
  - Nasopharyngitis [Unknown]
  - Product dose omission issue [Unknown]
